FAERS Safety Report 18913781 (Version 1)
Quarter: 2021Q1

REPORT INFORMATION
  Report Type: Spontaneous
  Country: US (occurrence: US)
  Receive Date: 20210218
  Receipt Date: 20210218
  Transmission Date: 20210420
  Serious: No
  Sender: FDA-Public Use
  Company Number: US-NOVOPROD-712129

PATIENT
  Age: 52 Year
  Sex: Female

DRUGS (1)
  1. VICTOZA [Suspect]
     Active Substance: LIRAGLUTIDE
     Indication: DIABETES MELLITUS INADEQUATE CONTROL
     Dosage: 1.8 MG, QD
     Route: 058
     Dates: start: 20200131, end: 20200131

REACTIONS (6)
  - Vomiting [Recovered/Resolved]
  - Feeling jittery [Recovered/Resolved]
  - Abdominal pain upper [Recovered/Resolved]
  - Feeling abnormal [Recovered/Resolved]
  - Euphoric mood [Recovered/Resolved]
  - Nervousness [Recovered/Resolved]

NARRATIVE: CASE EVENT DATE: 20200131
